FAERS Safety Report 16279265 (Version 1)
Quarter: 2019Q2

REPORT INFORMATION
  Report Type: Report from Study
  Country: None (occurrence: IE)
  Receive Date: 20190506
  Receipt Date: 20190506
  Transmission Date: 20190711
  Serious: Yes (Hospitalization)
  Sender: FDA-Public Use
  Company Number: IE-ABBVIE-19K-229-2768397-00

PATIENT
  Sex: Female

DRUGS (1)
  1. HUMIRA [Suspect]
     Active Substance: ADALIMUMAB
     Indication: RHEUMATOID ARTHRITIS
     Route: 058
     Dates: start: 20190402, end: 201904

REACTIONS (6)
  - Nausea [Unknown]
  - Respiratory disorder [Unknown]
  - Photophobia [Unknown]
  - Photosensitivity reaction [Unknown]
  - Sunburn [Unknown]
  - Syncope [Unknown]

NARRATIVE: CASE EVENT DATE: 2019
